FAERS Safety Report 18738107 (Version 3)
Quarter: 2022Q3

REPORT INFORMATION
  Report Type: Report from Study
  Country: US (occurrence: US)
  Receive Date: 20210113
  Receipt Date: 20220713
  Transmission Date: 20221027
  Serious: No
  Sender: FDA-Public Use
  Company Number: US-VANDA PHARMACEUTICALS, INC-2020TASUS004336

PATIENT
  Sex: Male

DRUGS (8)
  1. HETLIOZ [Interacting]
     Active Substance: TASIMELTEON
     Indication: Non-24-hour sleep-wake disorder
     Dosage: 20 MILLIGRAM, QD
     Route: 048
     Dates: start: 202008
  2. HETLIOZ [Interacting]
     Active Substance: TASIMELTEON
     Dosage: 20 MILLIGRAM, QD
     Route: 048
     Dates: start: 202008
  3. MELATONIN [Interacting]
     Active Substance: MELATONIN
     Indication: Product used for unknown indication
     Dosage: UNK
  4. DILTIAZEM [Concomitant]
     Active Substance: DILTIAZEM
     Indication: Product used for unknown indication
     Dosage: UNK
  5. SOTALOL [Concomitant]
     Active Substance: SOTALOL
     Indication: Product used for unknown indication
     Dosage: UNK
  6. IRBESARTAN [Concomitant]
     Active Substance: IRBESARTAN
     Indication: Product used for unknown indication
     Dosage: UNK
  7. ATORVASTATIN CALCIUM [Concomitant]
     Active Substance: ATORVASTATIN CALCIUM
     Indication: Product used for unknown indication
     Dosage: UNK
  8. ESZOPICLONE [Concomitant]
     Active Substance: ESZOPICLONE
     Indication: Product used for unknown indication
     Dosage: UNK

REACTIONS (9)
  - Nausea [Unknown]
  - Cough [Unknown]
  - Gastrooesophageal reflux disease [Unknown]
  - Poor quality sleep [Unknown]
  - Feeling abnormal [Unknown]
  - Cardiac disorder [Recovered/Resolved]
  - Drug interaction [Unknown]
  - Product dose omission issue [Recovered/Resolved]
  - Drug ineffective [Unknown]
